FAERS Safety Report 5563098-3 (Version None)
Quarter: 2007Q4

REPORT INFORMATION
  Report Type: 
  Country: None (occurrence: None)
  Receive Date: 20071217
  Receipt Date: 20071214
  Transmission Date: 20080405
  Serious: Yes (Death)
  Sender: FDA-Public Use
  Company Number: A0699116A

PATIENT
  Sex: Male

DRUGS (2)
  1. SERETIDE [Suspect]
     Indication: CHRONIC OBSTRUCTIVE PULMONARY DISEASE
     Dates: start: 20071106, end: 20071116
  2. TIOTROPIUM [Concomitant]
     Dates: start: 20071106

REACTIONS (1)
  - PULMONARY EMBOLISM [None]
